FAERS Safety Report 5385649-4 (Version None)
Quarter: 2007Q3

REPORT INFORMATION
  Report Type: 
  Country: None (occurrence: None)
  Receive Date: 20070712
  Receipt Date: 20070710
  Transmission Date: 20080115
  Serious: Yes (Disabling)
  Sender: FDA-Public Use
  Company Number: FR-ASTRAZENECA-2007CG00964

PATIENT
  Age: 66 Year
  Weight: 50 kg

DRUGS (13)
  1. ARIMIDEX [Suspect]
     Indication: BREAST CANCER
     Route: 048
     Dates: start: 20040330, end: 20040813
  2. CAELYX [Suspect]
     Route: 042
     Dates: start: 20050525, end: 20060623
  3. ZOMETA [Suspect]
     Route: 042
     Dates: start: 20030604, end: 20030724
  4. ZOMETA [Suspect]
     Route: 042
     Dates: start: 20040122, end: 20060106
  5. BONDRONAT [Suspect]
     Dates: start: 20060303
  6. TAMOXIFEN [Concomitant]
  7. GEMZAR [Concomitant]
     Dates: start: 20030306, end: 20030724
  8. TAXOTERE [Concomitant]
     Dates: start: 20030306, end: 20030724
  9. NAVELBINE [Concomitant]
     Dosage: 4 COURSES
     Dates: start: 20030319, end: 20031203
  10. EVISTA [Concomitant]
     Dates: start: 20040122
  11. SUCRALFATE [Concomitant]
     Dates: start: 20040213
  12. BIRODOGYL [Concomitant]
     Dates: start: 20060303
  13. TRIFLUCAN [Concomitant]
     Dates: start: 20060303

REACTIONS (1)
  - OSTEONECROSIS [None]
